FAERS Safety Report 24547118 (Version 2)
Quarter: 2024Q4

REPORT INFORMATION
  Report Type: Report from Study
  Country: US (occurrence: US)
  Receive Date: 20241025
  Receipt Date: 20241028
  Transmission Date: 20250115
  Serious: No
  Sender: ROCHE
  Company Number: US-ROCHE-10000115319

PATIENT
  Age: 40 Year
  Sex: Female

DRUGS (1)
  1. OCREVUS [Suspect]
     Active Substance: OCRELIZUMAB
     Indication: Relapsing multiple sclerosis
     Dosage: DATE OF TREATMENT: 28-JUL-2021, 03-FEB-2022, 21-JUL-2022, 19-JAN-2023, 27-JUL-2023,
     Route: 042
     Dates: start: 20210714

REACTIONS (1)
  - COVID-19 [Recovered/Resolved]
